FAERS Safety Report 13967155 (Version 1)
Quarter: 2017Q3

REPORT INFORMATION
  Report Type: Spontaneous
  Country: CA (occurrence: CA)
  Receive Date: 20170914
  Receipt Date: 20170914
  Transmission Date: 20171128
  Serious: Yes (Hospitalization)
  Sender: FDA-Public Use
  Company Number: CA-SUN PHARMACEUTICAL INDUSTRIES LTD-2017US-149733

PATIENT
  Weight: 3 kg

DRUGS (1)
  1. PARACETAMOL [Suspect]
     Active Substance: ACETAMINOPHEN
     Indication: PRODUCT USED FOR UNKNOWN INDICATION
     Dosage: 24 TABLETS OF 500MG PARACETAMOL OVER A 48 HOURS
     Route: 064

REACTIONS (2)
  - Foetal exposure during pregnancy [Unknown]
  - Respiratory distress [Recovering/Resolving]
